FAERS Safety Report 4487432-0 (Version None)
Quarter: 2004Q4

REPORT INFORMATION
  Report Type: 
  Country: None (occurrence: None)
  Receive Date: 20041027
  Receipt Date: 20041022
  Transmission Date: 20050328
  Serious: Yes (Life-Threatening, Hospitalization, Disabling, Other)
  Sender: FDA-Public Use
  Company Number: US-MERCK-0410USA03598

PATIENT
  Age: 70 Year
  Sex: Female

DRUGS (3)
  1. VIOXX [Suspect]
     Indication: ARTHRITIS
     Route: 048
     Dates: start: 19990101, end: 20030601
  2. [THERAPY UNSPECIFIED] [Concomitant]
     Route: 065
  3. CELEBREX [Concomitant]
     Route: 065
     Dates: start: 20030101

REACTIONS (3)
  - CHEST PAIN [None]
  - DRUG INEFFECTIVE [None]
  - TREATMENT NONCOMPLIANCE [None]
